FAERS Safety Report 13902879 (Version 1)
Quarter: 2017Q3

REPORT INFORMATION
  Report Type: Spontaneous
  Country: FR (occurrence: FR)
  Receive Date: 20170824
  Receipt Date: 20170824
  Transmission Date: 20171127
  Serious: Yes (Hospitalization, Other)
  Sender: FDA-Public Use
  Company Number: FR-MYLANLABS-2017M1051155

PATIENT

DRUGS (30)
  1. NIF?DIPINE MYLAN LP 20 MG, COMPRIM? ? LIB?RATION PROLONG?E [Suspect]
     Active Substance: NIFEDIPINE
     Dosage: 20 MG, 3 DAYS
     Route: 048
     Dates: start: 20170426, end: 20170428
  2. ATOSIBAN SUN [Suspect]
     Active Substance: ATOSIBAN
     Indication: THREATENED LABOUR
     Dosage: UNK
     Dates: start: 20170413
  3. SYNTOCINON [Suspect]
     Active Substance: OXYTOCIN
     Indication: PRODUCT USED FOR UNKNOWN INDICATION
     Dosage: UNK
     Dates: start: 20170430, end: 20170430
  4. SPASFON                            /00765801/ [Suspect]
     Active Substance: PHLOROGLUCINOL\1,3,5-TRIMETHOXYBENZENE
     Indication: PRODUCT USED FOR UNKNOWN INDICATION
     Dosage: UNK
     Dates: start: 20170424
  5. SPASFON                            /00765801/ [Suspect]
     Active Substance: PHLOROGLUCINOL\1,3,5-TRIMETHOXYBENZENE
     Dosage: UNK
     Dates: start: 20170429
  6. SPASFON                            /00765801/ [Suspect]
     Active Substance: PHLOROGLUCINOL\1,3,5-TRIMETHOXYBENZENE
     Dosage: UNK
     Route: 048
     Dates: start: 20170503
  7. NIF?DIPINE MYLAN LP 20 MG, COMPRIM? ? LIB?RATION PROLONG?E [Suspect]
     Active Substance: NIFEDIPINE
     Dosage: UNK
     Route: 048
     Dates: start: 20170424
  8. EXACYL [Suspect]
     Active Substance: TRANEXAMIC ACID
     Indication: UTERINE ATONY
     Dosage: UNK
     Route: 042
     Dates: start: 20170430, end: 20170430
  9. SPASFON                            /00765801/ [Suspect]
     Active Substance: PHLOROGLUCINOL\1,3,5-TRIMETHOXYBENZENE
     Dosage: UNK
     Dates: start: 20170428
  10. ALPRAZOLAM MYLAN 0.25 MG, COMPRIM? S?CABLE [Suspect]
     Active Substance: ALPRAZOLAM
     Indication: PRODUCT USED FOR UNKNOWN INDICATION
     Dosage: 0.25 MG, UNK
     Route: 048
     Dates: start: 20170428, end: 20170429
  11. NIF?DIPINE MYLAN LP 20 MG, COMPRIM? ? LIB?RATION PROLONG?E [Suspect]
     Active Substance: NIFEDIPINE
     Dosage: UNK
     Route: 048
     Dates: start: 20170421
  12. CLAMOXYL                           /00249601/ [Suspect]
     Active Substance: AMOXICILLIN
     Dosage: 1 G, UNK
     Dates: start: 20170425, end: 20170430
  13. NICARDIPINE AGUETTANT [Suspect]
     Active Substance: NICARDIPINE
     Indication: PRODUCT USED FOR UNKNOWN INDICATION
     Dosage: UNK
     Route: 042
     Dates: start: 20170430, end: 20170430
  14. SPASFON                            /00765801/ [Suspect]
     Active Substance: PHLOROGLUCINOL\1,3,5-TRIMETHOXYBENZENE
     Dosage: UNK
     Route: 048
     Dates: start: 20170506
  15. NIF?DIPINE MYLAN LP 20 MG, COMPRIM? ? LIB?RATION PROLONG?E [Suspect]
     Active Substance: NIFEDIPINE
     Indication: THREATENED LABOUR
     Dosage: UNK
     Route: 048
     Dates: start: 20170420
  16. FURADANTINE [Suspect]
     Active Substance: NITROFURANTOIN
     Indication: URINARY TRACT INFECTION
     Dosage: 2 DF, TID
     Route: 048
     Dates: start: 20170428, end: 20170429
  17. ATOSIBAN SUN [Suspect]
     Active Substance: ATOSIBAN
     Dosage: UNK
     Route: 042
     Dates: start: 20170418, end: 20170419
  18. NALADOR [Suspect]
     Active Substance: SULPROSTONE
     Indication: UTERINE ATONY
     Dosage: UNK
     Route: 042
     Dates: start: 20170430, end: 20170430
  19. CIMETIDINE ARROW [Suspect]
     Active Substance: CIMETIDINE
     Indication: PRODUCT USED FOR UNKNOWN INDICATION
     Dosage: UNK
     Dates: start: 20170430
  20. CLAMOXYL                           /00249601/ [Suspect]
     Active Substance: AMOXICILLIN
     Indication: BETA HAEMOLYTIC STREPTOCOCCAL INFECTION
     Dosage: 1 G, 3 DAYS
     Route: 048
     Dates: start: 20170413, end: 20170419
  21. ONDANSETRON ACCORD [Suspect]
     Active Substance: ONDANSETRON
     Indication: PRODUCT USED FOR UNKNOWN INDICATION
     Dosage: UNK
     Route: 042
     Dates: start: 20170430, end: 20170430
  22. LIDOCAINE ADRENALINE AGUETTANT [Suspect]
     Active Substance: EPINEPHRINE\LIDOCAINE
     Indication: PRODUCT USED FOR UNKNOWN INDICATION
     Dosage: UNK
     Route: 042
     Dates: start: 20170430, end: 20170430
  23. ATOSIBAN SUN [Suspect]
     Active Substance: ATOSIBAN
     Dosage: UNK
     Route: 042
     Dates: start: 20170428, end: 20170430
  24. CHIROCAINE [Suspect]
     Active Substance: LEVOBUPIVACAINE HYDROCHLORIDE
     Indication: ANAESTHESIA
     Dosage: UNK
     Route: 042
     Dates: start: 20170430, end: 20170430
  25. SPASFON                            /00765801/ [Suspect]
     Active Substance: PHLOROGLUCINOL\1,3,5-TRIMETHOXYBENZENE
     Dosage: UNK
     Route: 048
     Dates: start: 20170504
  26. NIF?DIPINE MYLAN LP 20 MG, COMPRIM? ? LIB?RATION PROLONG?E [Suspect]
     Active Substance: NIFEDIPINE
     Dosage: UNK
     Route: 048
     Dates: start: 20170423
  27. SUFENTANIL MYLAN [Suspect]
     Active Substance: SUFENTANIL
     Indication: ANAESTHESIA
     Dosage: UNK
     Route: 042
     Dates: start: 20170430, end: 20170430
  28. CEFAZOLIN MYLAN [Suspect]
     Active Substance: CEFAZOLIN
     Indication: PRODUCT USED FOR UNKNOWN INDICATION
     Dosage: UNK
     Route: 042
     Dates: start: 20170430, end: 20170430
  29. MORPHINE CHLORHYDRATE AGUETTANT [Suspect]
     Active Substance: MORPHINE HYDROCHLORIDE
     Indication: PAIN
     Dosage: UNK
     Route: 042
     Dates: start: 20170430, end: 20170502
  30. ATOSIBAN SUN [Suspect]
     Active Substance: ATOSIBAN
     Dosage: UNK
     Route: 042
     Dates: start: 20170425, end: 20170426

REACTIONS (7)
  - Exposure during pregnancy [Recovered/Resolved]
  - Caesarean section [None]
  - Dyspnoea [None]
  - Tachycardia [None]
  - Altered state of consciousness [None]
  - Pancreatitis acute [Recovered/Resolved]
  - HELLP syndrome [None]

NARRATIVE: CASE EVENT DATE: 20170430
